FAERS Safety Report 6197769-5 (Version None)
Quarter: 2009Q2

REPORT INFORMATION
  Report Type: 
  Country: None (occurrence: None)
  Receive Date: 20090521
  Receipt Date: 20090512
  Transmission Date: 20091009
  Serious: Yes (Other)
  Sender: FDA-Public Use
  Company Number: US-AMGEN-US346834

PATIENT
  Sex: Male

DRUGS (4)
  1. NPLATE [Suspect]
     Indication: IDIOPATHIC THROMBOCYTOPENIC PURPURA
     Dates: start: 20080924, end: 20081207
  2. DECADRON [Concomitant]
     Dates: start: 20070101
  3. IMMUNOGLOBULINS [Concomitant]
     Route: 042
     Dates: start: 19990101
  4. RITUXIMAB [Concomitant]

REACTIONS (1)
  - BONE MARROW TRANSPLANT [None]
